FAERS Safety Report 25342187 (Version 1)
Quarter: 2025Q2

REPORT INFORMATION
  Report Type: Spontaneous
  Country: JP (occurrence: JP)
  Receive Date: 20250521
  Receipt Date: 20250521
  Transmission Date: 20250717
  Serious: Yes (Death)
  Sender: JAZZ
  Company Number: JP-JAZZ PHARMACEUTICALS-2025-JP-012726

PATIENT
  Age: 7 Decade

DRUGS (1)
  1. DEFITELIO [Suspect]
     Active Substance: DEFIBROTIDE SODIUM
     Indication: Venoocclusive liver disease
     Route: 042
     Dates: start: 20250415, end: 20250428

REACTIONS (2)
  - Venoocclusive liver disease [Fatal]
  - Haemorrhage [Fatal]

NARRATIVE: CASE EVENT DATE: 20250428
